FAERS Safety Report 4714445-3 (Version None)
Quarter: 2005Q3

REPORT INFORMATION
  Report Type: 
  Country: None (occurrence: None)
  Receive Date: 20050714
  Receipt Date: 20050704
  Transmission Date: 20060218
  Serious: Yes (Other)
  Sender: FDA-Public Use
  Company Number: PHBS2005IN09630

PATIENT
  Age: 80 Year
  Sex: Female

DRUGS (3)
  1. VOVERAN OPHTHALMIC (NVO) [Suspect]
     Dosage: UNK, QID
  2. PREDNISOLONE ACETATE [Concomitant]
  3. ANTIGLAUCOMA PREPARATIONS AND MIOTICS [Concomitant]

REACTIONS (2)
  - CORNEAL PERFORATION [None]
  - ULCERATIVE KERATITIS [None]
